FAERS Safety Report 4286366-4 (Version None)
Quarter: 2004Q1

REPORT INFORMATION
  Report Type: 
  Country: None (occurrence: None)
  Receive Date: 20040205
  Receipt Date: 20031212
  Transmission Date: 20041129
  Serious: Yes (Death, Life-Threatening, Hospitalization)
  Sender: FDA-Public Use
  Company Number: WAES 0312USA01372

PATIENT
  Age: 76 Year
  Sex: Male

DRUGS (4)
  1. [THERAPY UNSPECIFIED] [Concomitant]
  2. ANTIMICROBIAL (UNSPECIFIED) [Concomitant]
  3. CORTICOSTEROIDS (UNSPECIFIED) [Concomitant]
  4. SINGULAIR [Suspect]
     Indication: CHRONIC OBSTRUCTIVE AIRWAYS DISEASE
     Route: 048
     Dates: start: 20031209, end: 20031211

REACTIONS (2)
  - CARDIAC ARREST [None]
  - VENTRICULAR TACHYCARDIA [None]
